FAERS Safety Report 19820278 (Version 1)
Quarter: 2021Q3

REPORT INFORMATION
  Report Type: Report from Study
  Country: MX (occurrence: MX)
  Receive Date: 20210913
  Receipt Date: 20210913
  Transmission Date: 20211014
  Serious: Yes (Other)
  Sender: FDA-Public Use
  Company Number: NVSC2021MX156889

PATIENT
  Age: 77 Year
  Sex: Female
  Weight: 50 kg

DRUGS (5)
  1. GALVUS MET [Suspect]
     Active Substance: METFORMIN HYDROCHLORIDE\VILDAGLIPTIN
     Indication: DIABETES MELLITUS
     Dosage: 1 DF, Q12H, APPROXIMATELY 4 YEARS AGO
     Route: 048
  2. GALVUS MET [Suspect]
     Active Substance: METFORMIN HYDROCHLORIDE\VILDAGLIPTIN
     Dosage: 1 DF, BID
     Route: 048
  3. CLONAZEPAM. [Concomitant]
     Active Substance: CLONAZEPAM
     Indication: INSOMNIA
     Dosage: ? (2MG), QD
     Route: 048
  4. MIRTAZAPINE. [Concomitant]
     Active Substance: MIRTAZAPINE
     Indication: INSOMNIA
     Dosage: ? (30MG), QD
     Route: 048
  5. QUETIAPINE. [Concomitant]
     Active Substance: QUETIAPINE
     Indication: INSOMNIA
     Dosage: ? (25MG), QD
     Route: 048

REACTIONS (11)
  - Diarrhoea [Unknown]
  - Decreased appetite [Unknown]
  - Headache [Unknown]
  - Hepatic steatosis [Not Recovered/Not Resolved]
  - General physical health deterioration [Unknown]
  - Nausea [Unknown]
  - COVID-19 [Recovered/Resolved]
  - Irritable bowel syndrome [Not Recovered/Not Resolved]
  - COVID-19 [Recovering/Resolving]
  - Osteoporosis [Not Recovered/Not Resolved]
  - Anhedonia [Unknown]

NARRATIVE: CASE EVENT DATE: 20201228
